FAERS Safety Report 25514141 (Version 1)
Quarter: 2025Q3

REPORT INFORMATION
  Report Type: Spontaneous
  Country: EU (occurrence: EU)
  Receive Date: 20250703
  Receipt Date: 20250703
  Transmission Date: 20251021
  Serious: Yes (Other)
  Sender: BOEHRINGER INGELHEIM
  Company Number: EU-BoehringerIngelheim-2025-BI-080486

PATIENT
  Sex: Male
  Weight: 78 kg

DRUGS (3)
  1. OFEV [Suspect]
     Active Substance: NINTEDANIB
     Indication: Idiopathic pulmonary fibrosis
     Dates: start: 202412
  2. PIRFENIDONE [Concomitant]
     Active Substance: PIRFENIDONE
     Indication: Idiopathic pulmonary fibrosis
     Dates: start: 202209
  3. VERAPAMIL [Concomitant]
     Active Substance: VERAPAMIL HYDROCHLORIDE
     Indication: Product used for unknown indication

REACTIONS (1)
  - Idiopathic pulmonary fibrosis [Unknown]
